FAERS Safety Report 15424767 (Version 1)
Quarter: 2018Q3

REPORT INFORMATION
  Report Type: Spontaneous
  Country: CN (occurrence: CN)
  Receive Date: 20180925
  Receipt Date: 20180925
  Transmission Date: 20181010
  Serious: Yes (Hospitalization)
  Sender: FDA-Public Use
  Company Number: CN-ELI_LILLY_AND_COMPANY-CN201809007457

PATIENT
  Age: 47 Year
  Sex: Female

DRUGS (2)
  1. HUMULIN 70/30 [Suspect]
     Active Substance: INSULIN HUMAN
     Dosage: 16 U, DAILY (NIGHT)
     Route: 058
     Dates: start: 2008, end: 20180829
  2. HUMULIN 70/30 [Suspect]
     Active Substance: INSULIN HUMAN
     Indication: DIABETES MELLITUS
     Dosage: 18 U, EACH MORNING
     Route: 058
     Dates: start: 2008, end: 20180829

REACTIONS (3)
  - Hypoglycaemia [Unknown]
  - Ketoacidosis [Unknown]
  - Blood glucose increased [Unknown]
